FAERS Safety Report 25750412 (Version 1)
Quarter: 2025Q3

REPORT INFORMATION
  Report Type: Spontaneous
  Country: US (occurrence: None)
  Receive Date: 20250829
  Receipt Date: 20250829
  Transmission Date: 20251020
  Serious: Yes (Hospitalization, Disabling, Other)
  Sender: FDA-CTU
  Company Number: None

PATIENT
  Age: 46 Year
  Sex: Female
  Weight: 86.4 kg

DRUGS (1)
  1. MONTELUKAST [Suspect]
     Active Substance: MONTELUKAST
     Indication: Hypersensitivity
     Dates: start: 20210801, end: 20250630

REACTIONS (19)
  - Insomnia [None]
  - Abnormal dreams [None]
  - Somnambulism [None]
  - Amnesia [None]
  - Aphasia [None]
  - Fatigue [None]
  - Brain fog [None]
  - Anxiety [None]
  - Irritability [None]
  - Depression [None]
  - Mood swings [None]
  - Agitation [None]
  - Indifference [None]
  - Intrusive thoughts [None]
  - Laboratory test abnormal [None]
  - Autoinflammatory disease [None]
  - Quality of life decreased [None]
  - Emotional distress [None]
  - Cognitive disorder [None]

NARRATIVE: CASE EVENT DATE: 20250515
